FAERS Safety Report 4266299-X (Version None)
Quarter: 2004Q1

REPORT INFORMATION
  Report Type: 
  Country: None (occurrence: None)
  Receive Date: 20040106
  Receipt Date: 20031218
  Transmission Date: 20041129
  Serious: Yes (Death)
  Sender: FDA-Public Use
  Company Number: HCDA20030003

PATIENT
  Age: 61 Year
  Sex: Male

DRUGS (3)
  1. HYDROCODONE/APAP [Suspect]
     Dosage: PO
     Route: 048
     Dates: start: 20020101, end: 20020101
  2. METHADONE HCL [Suspect]
     Dosage: PO
     Route: 048
     Dates: start: 20020101, end: 20020101
  3. ALPRAZOLAM [Suspect]
     Dosage: PO
     Route: 048
     Dates: start: 20020101, end: 20020101

REACTIONS (3)
  - COMPLETED SUICIDE [None]
  - CORONARY ARTERY DISEASE [None]
  - PULMONARY OEDEMA [None]
